FAERS Safety Report 25940391 (Version 1)
Quarter: 2025Q4

REPORT INFORMATION
  Report Type: Spontaneous
  Country: US (occurrence: None)
  Receive Date: 20251017
  Receipt Date: 20251017
  Transmission Date: 20260118
  Serious: Yes (Disabling)
  Sender: FDA-CTU
  Company Number: None

PATIENT
  Age: 21 Year
  Sex: Male
  Weight: 83.25 kg

DRUGS (1)
  1. FINASTERIDE [Suspect]
     Active Substance: FINASTERIDE
     Indication: Alopecia
     Dates: start: 20240910, end: 20241015

REACTIONS (7)
  - Sexual dysfunction [None]
  - Drug withdrawal syndrome [None]
  - Suicidal ideation [None]
  - Insomnia [None]
  - Depression [None]
  - Anxiety [None]
  - Product communication issue [None]

NARRATIVE: CASE EVENT DATE: 20241110
